FAERS Safety Report 14435254 (Version 1)
Quarter: 2018Q1

REPORT INFORMATION
  Report Type: Report from Study
  Country: CN (occurrence: CN)
  Receive Date: 20180125
  Receipt Date: 20180125
  Transmission Date: 20180509
  Serious: Yes (Other)
  Sender: FDA-Public Use
  Company Number: CN-ROCHE-1992334

PATIENT
  Sex: Male
  Weight: 62 kg

DRUGS (1)
  1. AVASTIN [Suspect]
     Active Substance: BEVACIZUMAB
     Indication: COLON CANCER METASTATIC
     Route: 041
     Dates: start: 20170216

REACTIONS (5)
  - Intestinal obstruction [Recovering/Resolving]
  - Pyrexia [Recovering/Resolving]
  - Enteritis [Unknown]
  - Nasopharyngitis [Recovering/Resolving]
  - Diarrhoea [Unknown]
